FAERS Safety Report 9034972 (Version 1)
Quarter: 2013Q1

REPORT INFORMATION
  Report Type: Spontaneous
  Country: GB (occurrence: None)
  Receive Date: 20130115
  Receipt Date: 20130115
  Transmission Date: 20140127
  Serious: Yes (Life-Threatening)
  Sender: FDA-Public Use
  Company Number: 2013-00231

PATIENT
  Age: 67 Year
  Sex: Female
  Weight: 73 kg

DRUGS (4)
  1. ROPINIROLE HYDROCHLORIDE (UNKNOWN)(ROPINIROLE HYDROCHLORIDE) UNK [Suspect]
     Indication: PARKINSON^S DISEASE
     Dosage: ROPINIROLE THREE TIMES A DAY THEN REQUIP XL,GRADUALLY INCREASED TO 20MG DAILY,
     Route: 048
     Dates: start: 20070626
  2. MADOPAR (BENSERAZIDE HYDROCHLORIDE, LEVODOPA) [Concomitant]
  3. RASAGILINE (RASAGILINE) [Concomitant]
  4. OXYBUTYNIN (OXYBUTYNIN) [Concomitant]

REACTIONS (3)
  - Disturbance in attention [None]
  - Somnambulism [None]
  - Sleep attacks [None]
